FAERS Safety Report 6670695-0 (Version None)
Quarter: 2010Q2

REPORT INFORMATION
  Report Type: 
  Country: None (occurrence: None)
  Receive Date: 20100405
  Receipt Date: 20100324
  Transmission Date: 20101027
  Serious: Yes (Death, Hospitalization)
  Sender: FDA-Public Use
  Company Number: 2009AC000318

PATIENT
  Age: 64 Year
  Sex: Male

DRUGS (92)
  1. DIGOXIN [Suspect]
     Indication: ATRIAL FIBRILLATION
     Dosage: 0.25 MG;QD;PO
     Route: 048
     Dates: start: 19910501, end: 20080131
  2. DIGOXIN [Suspect]
     Indication: ATRIAL FIBRILLATION
     Dosage: 0.125 MG;QD;PO
     Route: 048
     Dates: start: 20010601, end: 20031201
  3. PRINIVIL [Concomitant]
  4. AVANDIA [Concomitant]
  5. COUMADIN [Concomitant]
  6. TRIMOX [Concomitant]
  7. METOPROLOL TARTRATE [Concomitant]
  8. LISINOPRIL [Concomitant]
  9. KENALOG AEROSOL [Concomitant]
  10. METOLAZONE [Concomitant]
  11. INSPRA [Concomitant]
  12. NITROGLYCERIN [Concomitant]
  13. HYDROCHLOROTHIAZIDE [Concomitant]
  14. POTASSIUM [Concomitant]
  15. CHLORHEXIDINE GLUCONATE [Concomitant]
  16. OSMOPREP [Concomitant]
  17. AMIODARONE [Concomitant]
  18. NOVOLIN [Concomitant]
  19. SIMVASTATIN [Concomitant]
  20. GLIPIZIDE [Concomitant]
  21. TOPROL-XL [Concomitant]
  22. SIPRONOLACTONE [Concomitant]
  23. NEXIUM [Concomitant]
  24. AZITHROMYCIN [Concomitant]
  25. AMOXICILLIN [Concomitant]
  26. ....... [Concomitant]
  27. ......... [Concomitant]
  28. OXYCODONE HCL AND ACETAMINOPHEN [Concomitant]
  29. CLOTRIMAZOLE [Concomitant]
  30. LANTUS [Concomitant]
  31. LEGEND STOOL SOFTENER [Concomitant]
  32. GLUCOVANCE [Concomitant]
  33. ZOCOR [Concomitant]
  34. ................. [Concomitant]
  35. NYSTOP [Concomitant]
  36. ADVAIR DISKUS 100/50 [Concomitant]
  37. ALLEGRA [Concomitant]
  38. ENALAPRIL MALEATE [Concomitant]
  39. HYDRALAZINE HCL [Concomitant]
  40. CEFTIN [Concomitant]
  41. SUCRALFATE [Concomitant]
  42. TEQUIN [Concomitant]
  43. HYDROPANE [Concomitant]
  44. FLOVENT [Concomitant]
  45. SEREVENT [Concomitant]
  46. PREDNISONE TAB [Concomitant]
  47. GUIATUSS [Concomitant]
  48. LEVAQUIN [Concomitant]
  49. FLOXIN [Concomitant]
  50. PRILOSEC [Concomitant]
  51. COREG [Concomitant]
  52. AMOXIL [Concomitant]
  53. GLYBURIDE [Concomitant]
  54. DIOVAN [Concomitant]
  55. MONOPRIL [Concomitant]
  56. COZAAR [Concomitant]
  57. CEPHALEXIN [Concomitant]
  58. K-DUR [Concomitant]
  59. DIPYRIDAMOLE [Concomitant]
  60. CIPRO [Concomitant]
  61. NIZORAL [Concomitant]
  62. DURICEF [Concomitant]
  63. NORVASC [Concomitant]
  64. MICRONASE [Concomitant]
  65. BENZASHAVE [Concomitant]
  66. CARDIZEM [Concomitant]
  67. HYDROCORTISONE [Concomitant]
  68. HYTONE [Concomitant]
  69. CORGARD [Concomitant]
  70. NITROGLYCERIN [Concomitant]
  71. NITRO-DUR [Concomitant]
  72. NITROSTAT [Concomitant]
  73. TICLID [Concomitant]
  74. ERYTHROCIN LACTOBIONATE [Concomitant]
  75. SULFAMETHOXAZOLE [Concomitant]
  76. ALBUTEROL [Concomitant]
  77. INSULIN [Concomitant]
  78. GLUCOTROL [Concomitant]
  79. ZOCOR [Concomitant]
  80. TOPROL-XL [Concomitant]
  81. ............. [Concomitant]
  82. INSULIN [Concomitant]
  83. POTASSIUM [Concomitant]
  84. LASIX [Concomitant]
  85. .................... [Concomitant]
  86. ......................... [Concomitant]
  87. .................. [Concomitant]
  88. ......................... [Concomitant]
  89. METFORMIN HCL [Concomitant]
  90. ZOCOR [Concomitant]
  91. .............. [Concomitant]
  92. PRIMACOR [Concomitant]

REACTIONS (71)
  - ABDOMINAL PAIN [None]
  - ACUTE MYOCARDIAL INFARCTION [None]
  - ANHEDONIA [None]
  - ARRHYTHMIA [None]
  - ATRIAL FIBRILLATION [None]
  - BLADDER NEOPLASM [None]
  - BODY MASS INDEX DECREASED [None]
  - CARDIAC ARREST [None]
  - CARDIAC FAILURE [None]
  - CARDIAC FAILURE CONGESTIVE [None]
  - CARDIAC MURMUR [None]
  - CARDIO-RESPIRATORY ARREST [None]
  - CARDIOGENIC SHOCK [None]
  - CARDIOMEGALY [None]
  - CARDIOMYOPATHY [None]
  - CHEST PAIN [None]
  - CONSTIPATION [None]
  - CORONARY ARTERY DISEASE [None]
  - COUGH [None]
  - DEPRESSION [None]
  - DIABETES MELLITUS INADEQUATE CONTROL [None]
  - DIARRHOEA [None]
  - DIZZINESS [None]
  - DYSGEUSIA [None]
  - DYSPNOEA [None]
  - DYSPNOEA EXERTIONAL [None]
  - DYSPNOEA PAROXYSMAL NOCTURNAL [None]
  - ECONOMIC PROBLEM [None]
  - EMOTIONAL DISORDER [None]
  - EMOTIONAL DISTRESS [None]
  - EXPOSURE TO TOXIC AGENT [None]
  - FALL [None]
  - FATIGUE [None]
  - HEPATOJUGULAR REFLUX [None]
  - HERNIA REPAIR [None]
  - HYPERHIDROSIS [None]
  - HYPERSOMNIA [None]
  - HYPERTENSION [None]
  - HYPOKALAEMIA [None]
  - ILIAC ARTERY OCCLUSION [None]
  - ISCHAEMIC CARDIOMYOPATHY [None]
  - JUGULAR VEIN DISTENSION [None]
  - LEFT ATRIAL DILATATION [None]
  - LEFT VENTRICULAR DYSFUNCTION [None]
  - MENTAL DISORDER [None]
  - METASTATIC NEOPLASM [None]
  - MITRAL VALVE INCOMPETENCE [None]
  - MULTIPLE INJURIES [None]
  - MUSCULAR WEAKNESS [None]
  - MYOCARDIAL INFARCTION [None]
  - NAUSEA [None]
  - NEOPLASM PROSTATE [None]
  - OCCULT BLOOD POSITIVE [None]
  - ORTHOPNOEA [None]
  - OXYGEN SATURATION DECREASED [None]
  - PAIN [None]
  - PALPITATIONS [None]
  - PNEUMONIA [None]
  - PROSTATOMEGALY [None]
  - PULMONARY HYPERTENSION [None]
  - QUALITY OF LIFE DECREASED [None]
  - RENAL FAILURE ACUTE [None]
  - RENAL FAILURE CHRONIC [None]
  - RESPIRATORY DISTRESS [None]
  - RIGHT ATRIAL DILATATION [None]
  - SINUS TACHYCARDIA [None]
  - SYNCOPE [None]
  - TRICUSPID VALVE INCOMPETENCE [None]
  - VENTRICULAR HYPERTROPHY [None]
  - VENTRICULAR HYPOKINESIA [None]
  - WEIGHT DECREASED [None]
